FAERS Safety Report 19640375 (Version 3)
Quarter: 2021Q3

REPORT INFORMATION
  Report Type: Spontaneous
  Country: GB (occurrence: GB)
  Receive Date: 20210730
  Receipt Date: 20210910
  Transmission Date: 20211014
  Serious: Yes (Disabling)
  Sender: FDA-Public Use
  Company Number: GB-ASTRAZENECA-2021A652699

PATIENT
  Age: 43 Year
  Sex: Female
  Weight: 45.8 kg

DRUGS (2)
  1. PROBIOTIC [Concomitant]
     Active Substance: PROBIOTICS NOS
     Dosage: UNKNOWN
     Route: 065
  2. OMEPRAZOLE. [Suspect]
     Active Substance: OMEPRAZOLE
     Indication: ABDOMINAL PAIN UPPER
     Dosage: 1 DF, DAILY
     Route: 048
     Dates: start: 202009, end: 202011

REACTIONS (9)
  - Nausea [Recovered/Resolved with Sequelae]
  - Diarrhoea [Recovered/Resolved with Sequelae]
  - Suicidal ideation [Recovered/Resolved with Sequelae]
  - Insomnia [Recovered/Resolved with Sequelae]
  - Weight decreased [Unknown]
  - Feeding disorder [Unknown]
  - Duodenitis [Unknown]
  - Anxiety [Unknown]
  - Hiatus hernia [Unknown]

NARRATIVE: CASE EVENT DATE: 202009
